FAERS Safety Report 10684074 (Version 1)
Quarter: 2014Q4

REPORT INFORMATION
  Report Type: Report from Study
  Country: US (occurrence: US)
  Receive Date: 20141230
  Receipt Date: 20141230
  Transmission Date: 20150529
  Serious: Yes (Death, Hospitalization, Other)
  Sender: FDA-Public Use
  Company Number: US-MYLANLABS-2014M1015780

PATIENT

DRUGS (5)
  1. CYTARABINE. [Suspect]
     Active Substance: CYTARABINE
     Indication: ACUTE MYELOID LEUKAEMIA
     Dosage: 160 MG, UNK
     Route: 042
     Dates: start: 20140518, end: 20140525
  2. INVESTIGATIONAL DRUG [Concomitant]
     Active Substance: INVESTIGATIONAL PRODUCT
     Dosage: 100 MG, QD
     Route: 048
     Dates: start: 20140515, end: 20140616
  3. DAUNORUBICIN [Concomitant]
     Active Substance: DAUNORUBICIN
     Dosage: 96.6 MG, UNK
     Dates: start: 20140518, end: 20140520
  4. HYDROCORTISONE. [Concomitant]
     Active Substance: HYDROCORTISONE
     Dosage: 50 MG/1ML, UNK
     Route: 037
     Dates: start: 20140610, end: 20140610
  5. CYTARABINE. [Concomitant]
     Active Substance: CYTARABINE
     Dosage: 100 MG/1ML, UNK
     Route: 037
     Dates: start: 20140610, end: 20140610

REACTIONS (6)
  - Nausea [Not Recovered/Not Resolved]
  - Disease progression [Fatal]
  - Vomiting [Not Recovered/Not Resolved]
  - Headache [Not Recovered/Not Resolved]
  - Subdural haematoma [Not Recovered/Not Resolved]
  - Platelet count decreased [Not Recovered/Not Resolved]

NARRATIVE: CASE EVENT DATE: 2014
